FAERS Safety Report 7997299-1 (Version None)
Quarter: 2011Q4

REPORT INFORMATION
  Report Type: 
  Country: None (occurrence: None)
  Receive Date: 20111207
  Receipt Date: 20111121
  Transmission Date: 20120403
  Serious: Yes (Death)
  Sender: FDA-Public Use
  Company Number: LIT-069-11-IT

PATIENT
  Age: 61 Year
  Sex: Female

DRUGS (6)
  1. SALINE [Concomitant]
  2. HYDROCHLOROTHIAZIDE [Concomitant]
  3. FUROSEMIDE [Concomitant]
  4. METHYLPREDNISOLONE [Concomitant]
  5. IMMUNE GLOBULIN INTRAVENOUS (HUMAN) [Suspect]
     Indication: OSMOTIC DEMYELINATION SYNDROME
     Dosage: 400 MG/KG - 5 X 1 / TOTAL, INTRAVENOUS (NOT OTHERWISE SPECIFIED)
     Route: 042
  6. CANRENONE [Concomitant]

REACTIONS (1)
  - PULMONARY EMBOLISM [None]
